FAERS Safety Report 4444999-6 (Version None)
Quarter: 2004Q3

REPORT INFORMATION
  Report Type: 
  Country: None (occurrence: None)
  Receive Date: 20040907
  Receipt Date: 20040823
  Transmission Date: 20050211
  Serious: No
  Sender: FDA-Public Use
  Company Number: 2004GB02028

PATIENT
  Age: 59 Year
  Sex: Male
  Weight: 74 kg

DRUGS (3)
  1. ATENOLOL [Suspect]
     Indication: HYPERTENSION
     Dosage: 50 MG DAILY PO
     Route: 048
     Dates: start: 20040726, end: 20040729
  2. PLENDIL [Concomitant]
  3. BENDROFLUAZIDE [Concomitant]

REACTIONS (5)
  - ANXIETY [None]
  - DEJA VU [None]
  - HYPERHIDROSIS [None]
  - IMPAIRED WORK ABILITY [None]
  - PALLOR [None]
